FAERS Safety Report 9264511 (Version 6)
Quarter: 2017Q4

REPORT INFORMATION
  Report Type: Spontaneous
  Country: JP (occurrence: JP)
  Receive Date: 20130501
  Receipt Date: 20171214
  Transmission Date: 20180321
  Serious: Yes (Hospitalization, Other)
  Sender: FDA-Public Use
  Company Number: JP-AMGEN-JPNSP2013029365

PATIENT
  Age: 64 Year
  Sex: Male

DRUGS (11)
  1. NADIFLOXACIN [Concomitant]
     Active Substance: NADIFLOXACIN
     Indication: ECTHYMA
  2. 5-FU [Suspect]
     Active Substance: FLUOROURACIL
     Indication: COLON CANCER
     Dosage: UNK UNK, CYCLICAL
     Route: 042
     Dates: start: 201302, end: 201308
  3. DECADRON [Concomitant]
     Active Substance: DEXAMETHASONE
     Dosage: UNK
     Route: 065
  4. FOSAPREPITANT MEGLUMINE [Concomitant]
     Active Substance: FOSAPREPITANT
     Dosage: UNK
     Route: 050
  5. CAMPTO [Suspect]
     Active Substance: IRINOTECAN
     Indication: COLON CANCER
     Dosage: UNK UNK, CYCLICAL
     Route: 041
     Dates: start: 201302, end: 201308
  6. NADIFLOXACIN [Concomitant]
     Active Substance: NADIFLOXACIN
     Indication: DERMATITIS ACNEIFORM
     Dosage: UNK
  7. NADIFLOXACIN [Concomitant]
     Active Substance: NADIFLOXACIN
     Indication: COLON CANCER
  8. LEVOFOLINATE [Suspect]
     Active Substance: LEVOLEUCOVORIN CALCIUM
     Indication: COLON CANCER
     Dosage: UNK UNK, CYCLICAL
     Route: 041
     Dates: start: 201302, end: 201308
  9. VECTIBIX [Suspect]
     Active Substance: PANITUMUMAB
     Indication: COLON CANCER
     Dosage: UNK UNK, CYCLICAL
     Route: 041
     Dates: start: 201302, end: 201308
  10. NASEA [Concomitant]
     Active Substance: RAMOSETRON HYDROCHLORIDE
     Dosage: UNK
     Route: 050
  11. CETUXIMAB. [Suspect]
     Active Substance: CETUXIMAB
     Indication: COLON CANCER
     Dosage: UNK UNK, CYCLICAL
     Route: 065
     Dates: start: 201302

REACTIONS (8)
  - Blister [Unknown]
  - Malaise [Unknown]
  - Erythema [Unknown]
  - Skin lesion [Unknown]
  - Dermatitis acneiform [Unknown]
  - Ecthyma [Recovered/Resolved]
  - Rash [Recovering/Resolving]
  - Diabetes mellitus [Unknown]

NARRATIVE: CASE EVENT DATE: 201302
